FAERS Safety Report 12573175 (Version 1)
Quarter: 2016Q3

REPORT INFORMATION
  Report Type: Spontaneous
  Country: None (occurrence: None)
  Receive Date: 20160719
  Receipt Date: 20160719
  Transmission Date: 20161109
  Serious: No
  Sender: FDA-Public Use
  Company Number: None

PATIENT

DRUGS (1)
  1. OCTREOTIDE, 100 MCG, 500 MCG [Suspect]
     Active Substance: OCTREOTIDE

REACTIONS (3)
  - Product label issue [None]
  - Product packaging issue [None]
  - Intercepted medication error [None]
